FAERS Safety Report 21889828 (Version 3)
Quarter: 2023Q1

REPORT INFORMATION
  Report Type: Spontaneous
  Country: ES (occurrence: ES)
  Receive Date: 20230120
  Receipt Date: 20230307
  Transmission Date: 20230418
  Serious: Yes (Hospitalization)
  Sender: FDA-Public Use
  Company Number: ES-ASTELLAS-2023US001738

PATIENT
  Age: 74 Year
  Sex: Male

DRUGS (1)
  1. ENFORTUMAB VEDOTIN [Suspect]
     Active Substance: ENFORTUMAB VEDOTIN
     Indication: Transitional cell carcinoma
     Dosage: UNK UNK, CYCLIC
     Route: 065
     Dates: end: 20230105

REACTIONS (9)
  - Malaise [Unknown]
  - Drug eruption [Recovered/Resolved]
  - Dermatitis infected [Recovered/Resolved]
  - Pyrexia [Recovered/Resolved]
  - Skin exfoliation [Recovered/Resolved]
  - Penile erosion [Recovering/Resolving]
  - Erythema [Recovered/Resolved]
  - Pain in extremity [Unknown]
  - Skin disorder [Recovering/Resolving]

NARRATIVE: CASE EVENT DATE: 20230101
